FAERS Safety Report 5358557-2 (Version None)
Quarter: 2007Q2

REPORT INFORMATION
  Report Type: 
  Country: None (occurrence: None)
  Receive Date: 20070615
  Receipt Date: 20070604
  Transmission Date: 20071010
  Serious: Yes (Death)
  Sender: FDA-Public Use
  Company Number: US-JNJFOC-20070603082

PATIENT
  Age: 47 Year
  Sex: Female

DRUGS (9)
  1. ACETAMINOPHEN [Suspect]
  2. ACETAMINOPHEN [Suspect]
     Indication: SUICIDE ATTEMPT
  3. PHENTERMINE HYDROCHLORIDE [Suspect]
     Indication: SUICIDE ATTEMPT
  4. PAXIL [Suspect]
     Indication: SUICIDE ATTEMPT
  5. OXYCODONE HCL [Suspect]
     Indication: SUICIDE ATTEMPT
  6. AMITRIPTYLINE HCL [Suspect]
     Indication: SUICIDE ATTEMPT
  7. ALPRAZOLAM [Suspect]
     Indication: SUICIDE ATTEMPT
  8. FLURAZEPAM [Suspect]
     Indication: SUICIDE ATTEMPT
  9. NORTRIPTYLINE HCL [Suspect]
     Indication: SUICIDE ATTEMPT

REACTIONS (2)
  - COMPLETED SUICIDE [None]
  - MULTIPLE DRUG OVERDOSE INTENTIONAL [None]
